FAERS Safety Report 12376601 (Version 2)
Quarter: 2016Q2

REPORT INFORMATION
  Report Type: Report from Study
  Country: US (occurrence: US)
  Receive Date: 20160517
  Receipt Date: 20160517
  Transmission Date: 20160815
  Serious: No
  Sender: FDA-Public Use
  Company Number: US-MALLINCKRODT-T201502639

PATIENT
  Age: 39 Year
  Sex: Female

DRUGS (1)
  1. REPOSITORY CORTICOTROPIN INJECTION [Suspect]
     Active Substance: CORTICOTROPIN
     Indication: RELAPSING-REMITTING MULTIPLE SCLEROSIS
     Dosage: 80 UNITS PER DAY
     Route: 065
     Dates: start: 20130927, end: 20131011

REACTIONS (2)
  - Injection site pain [Unknown]
  - Fluid retention [Unknown]
